FAERS Safety Report 9844712 (Version 1)
Quarter: 2014Q1

REPORT INFORMATION
  Report Type: Spontaneous
  Country: SG (occurrence: None)
  Receive Date: 20140122
  Receipt Date: 20140122
  Transmission Date: 20141002
  Serious: Yes (Hospitalization)
  Sender: FDA-Public Use
  Company Number: 7262057

PATIENT
  Age: 53 Year
  Sex: Male

DRUGS (3)
  1. LEVOTHYROXINE [Suspect]
     Indication: HYPOTHYROIDISM
     Dates: start: 2010
  2. METHOTREXATE [Suspect]
     Indication: PSORIASIS
     Dates: start: 201108
  3. LITHIUM [Suspect]
     Indication: BIPOLAR DISORDER
     Dates: start: 201108

REACTIONS (2)
  - Psoriasis [None]
  - Mania [None]
